FAERS Safety Report 8985112 (Version 1)
Quarter: 2012Q4

REPORT INFORMATION
  Report Type: 
  Country: US (occurrence: US)
  Receive Date: 20121224
  Receipt Date: 20121224
  Transmission Date: 20130627
  Serious: Yes (Life-Threatening, Hospitalization, Other)
  Sender: FDA-Public Use
  Company Number: US-ELI_LILLY_AND_COMPANY-US201212006976

PATIENT
  Age: 59 Year
  Sex: Female

DRUGS (8)
  1. CYMBALTA [Suspect]
     Indication: DEPRESSION
     Dosage: 30 mg, qd
     Dates: start: 2012
  2. VITAMIN B6 [Concomitant]
  3. ISONIAZIDE [Concomitant]
  4. MORPHINE SULFATE [Concomitant]
  5. XANAX [Concomitant]
  6. CALTRATE WITH VITAMIN D [Concomitant]
  7. IRON SULFATE [Concomitant]
  8. LEVOTHYROXINE [Concomitant]

REACTIONS (10)
  - Cerebrospinal fluid retention [Unknown]
  - Latent tuberculosis [Unknown]
  - Infection [Unknown]
  - Convulsion [Unknown]
  - Blood pressure increased [Recovered/Resolved]
  - Abasia [Unknown]
  - Anaemia [Unknown]
  - Abnormal dreams [Unknown]
  - Hallucination [Unknown]
  - Heart rate increased [Unknown]
